FAERS Safety Report 23553926 (Version 2)
Quarter: 2024Q1

REPORT INFORMATION
  Report Type: Spontaneous
  Country: US (occurrence: US)
  Receive Date: 20240222
  Receipt Date: 20240306
  Transmission Date: 20240409
  Serious: Yes (Other)
  Sender: FDA-Public Use
  Company Number: US-ZENPEP LLC-2024AIMT00166

PATIENT

DRUGS (5)
  1. ZENPEP [Suspect]
     Active Substance: PANCRELIPASE AMYLASE\PANCRELIPASE LIPASE\PANCRELIPASE PROTEASE
     Indication: Pancreatic failure
     Dosage: UNK USP UNITS (3 CAPSULES WITH EACH MEAL, 2 CAPSULES WITH EACH SNACK,)
     Route: 065
     Dates: start: 2010
  2. ZENPEP [Suspect]
     Active Substance: PANCRELIPASE AMYLASE\PANCRELIPASE LIPASE\PANCRELIPASE PROTEASE
     Dosage: UNK USP UNITS (3 CAPSULES WITH EACH MEAL, 2 CAPSULES WITH EACH SNACK,), ONCE, LAST DOSE PRIOR TO EVE
     Route: 065
  3. CREON [Concomitant]
     Active Substance: PANCRELIPASE AMYLASE\PANCRELIPASE LIPASE\PANCRELIPASE PROTEASE
     Indication: Product used for unknown indication
     Dosage: UNK
     Dates: start: 2010
  4. TAMOXIFEN [Concomitant]
     Active Substance: TAMOXIFEN
     Indication: Product used for unknown indication
  5. IRON [Concomitant]
     Active Substance: IRON
     Indication: Product used for unknown indication
     Dosage: UNK
     Route: 042
     Dates: start: 202312, end: 202312

REACTIONS (6)
  - Colon cancer metastatic [Not Recovered/Not Resolved]
  - Depressed mood [Not Recovered/Not Resolved]
  - Hypophagia [Recovered/Resolved]
  - Osteoporosis [Not Recovered/Not Resolved]
  - Shoulder operation [Unknown]
  - Constipation [Unknown]

NARRATIVE: CASE EVENT DATE: 20210101
